FAERS Safety Report 9246289 (Version 1)
Quarter: 2013Q2

REPORT INFORMATION
  Report Type: Other
  Country: GB (occurrence: GB)
  Receive Date: 20130422
  Receipt Date: 20130422
  Transmission Date: 20140414
  Serious: Yes (Other)
  Sender: FDA-Public Use
  Company Number: GB-TARO PHARMACEUTICALS U.S.A., INC-2013SUN00480

PATIENT
  Age: 46 Year
  Sex: Female

DRUGS (10)
  1. CARBAMAZEPINE [Suspect]
     Indication: GRAND MAL CONVULSION
     Dosage: 1000 MG, OD
     Route: 048
  2. METRONIDAZOLE [Interacting]
     Indication: PRODUCT USED FOR UNKNOWN INDICATION
     Dosage: 500 MG, TID
     Route: 042
     Dates: start: 20130402, end: 20130403
  3. METRONIDAZOLE [Interacting]
     Indication: PRODUCT USED FOR UNKNOWN INDICATION
     Dosage: 400 MG, TID
     Route: 048
  4. CEFTRIAXONE [Concomitant]
     Dosage: 2 G, OD
     Route: 042
     Dates: start: 20130403
  5. CEFUROXIME [Concomitant]
     Dosage: 1.5 G, TID
     Route: 042
     Dates: start: 20130402, end: 20130403
  6. CODEINE [Concomitant]
     Dosage: 60 MG, FOUR TIMES DAILY
     Route: 048
  7. DOXYCYCLINE [Concomitant]
     Dosage: 100 MG, BID
     Route: 048
     Dates: start: 20130403
  8. GENTAMICIN [Concomitant]
     Dosage: 240 MG, UNK
     Route: 042
     Dates: start: 20130403, end: 20130403
  9. MORPHINE SULPHATE [Concomitant]
     Dosage: 5 MG, PRN
     Route: 048
     Dates: start: 20130403
  10. PARACETAMOL [Concomitant]
     Dosage: 1 G, FOUR TIMES DAILY
     Route: 048

REACTIONS (6)
  - Drug interaction [Unknown]
  - Anticonvulsant drug level increased [Unknown]
  - Toxicity to various agents [Unknown]
  - Dizziness [Not Recovered/Not Resolved]
  - Diplopia [Not Recovered/Not Resolved]
  - Confusional state [Not Recovered/Not Resolved]
